FAERS Safety Report 19821164 (Version 1)
Quarter: 2021Q3

REPORT INFORMATION
  Report Type: Spontaneous
  Country: US (occurrence: US)
  Receive Date: 20210913
  Receipt Date: 20210913
  Transmission Date: 20211014
  Serious: No
  Sender: FDA-Public Use
  Company Number: US-NOVEN PHARMACEUTICALS, INC.-2020US005857

PATIENT
  Sex: Female
  Weight: 62.59 kg

DRUGS (1)
  1. COMBIPATCH [Suspect]
     Active Substance: ESTRADIOL\NORETHINDRONE ACETATE
     Indication: HOT FLUSH
     Dosage: 0.05/0.14MG, PER DAY
     Route: 062

REACTIONS (1)
  - Application site dermatitis [Not Recovered/Not Resolved]

NARRATIVE: CASE EVENT DATE: 2020
